FAERS Safety Report 17186257 (Version 7)
Quarter: 2021Q4

REPORT INFORMATION
  Report Type: Report from Study
  Country: FR (occurrence: FR)
  Receive Date: 20191220
  Receipt Date: 20211119
  Transmission Date: 20220304
  Serious: Yes (Hospitalization, Other)
  Sender: FDA-Public Use
  Company Number: FR-002147023-PHHY2019FR200232

PATIENT
  Sex: Male

DRUGS (18)
  1. ANAGRELIDE [Suspect]
     Active Substance: ANAGRELIDE
     Indication: Platelet count increased
     Dosage: 0.5 MILLIGRAM, 0.5 MG
     Route: 048
     Dates: start: 20190524, end: 20190822
  2. RUXOLITINIB [Suspect]
     Active Substance: RUXOLITINIB
     Indication: Myelofibrosis
     Dosage: 40 MILLIGRAM, QD, 40 MG, DAILY
     Route: 048
     Dates: start: 20190729, end: 20190816
  3. RUXOLITINIB [Suspect]
     Active Substance: RUXOLITINIB
     Dosage: 20 MILLIGRAM, QD, 20 MG DAILY, START DATE 30-AUG-2019
     Route: 048
     Dates: end: 20190902
  4. HYDROXYUREA [Suspect]
     Active Substance: HYDROXYUREA
     Indication: Essential thrombocythaemia
     Dosage: 500 MILLIGRAM
     Route: 048
     Dates: start: 20170817
  5. DARBEPOETIN ALFA [Concomitant]
     Active Substance: DARBEPOETIN ALFA
     Indication: Anaemia
     Dosage: 300 MICROGRAM
     Route: 058
     Dates: start: 20190604
  6. APIXABAN [Concomitant]
     Active Substance: APIXABAN
     Indication: Thrombosis prophylaxis
     Dosage: 10 MG, UNK
     Route: 048
  7. APIXABAN [Concomitant]
     Active Substance: APIXABAN
     Dosage: 10 MG, UNK
     Route: 048
  8. APIXABAN [Concomitant]
     Active Substance: APIXABAN
     Dosage: 10 MILLIGRAM
     Route: 048
     Dates: start: 20170519
  9. APIXABAN [Concomitant]
     Active Substance: APIXABAN
     Dosage: 5 MILLIGRAM
     Route: 048
     Dates: start: 20190704
  10. PREDNISONE [Concomitant]
     Active Substance: PREDNISONE
     Indication: Chemotherapy
     Dosage: 20 MILLIGRAM
     Route: 048
     Dates: start: 20190524
  11. INNOHEP [Concomitant]
     Active Substance: TINZAPARIN SODIUM
     Indication: Product used for unknown indication
     Dosage: 11000 INTERNATIONAL UNIT
     Route: 058
     Dates: start: 20190627, end: 20190701
  12. ALLOPURINOL W/BENZBROMARONE [Concomitant]
     Indication: Hyperuricaemia
     Dosage: 100 MILLIGRAM
     Route: 048
  13. BISOPROLOL [Concomitant]
     Active Substance: BISOPROLOL
     Indication: Hypertension
     Dosage: 7.5 MILLIGRAM
     Route: 048
     Dates: start: 20170519
  14. HYDROCHLOROTHIAZIDE\SPIRONOLACTONE [Concomitant]
     Active Substance: HYDROCHLOROTHIAZIDE\SPIRONOLACTONE
     Indication: Hypertension
     Dosage: 25 MILLIGRAM
     Route: 048
  15. FUROSEMIDE\POTASSIUM CHLORIDE [Concomitant]
     Active Substance: FUROSEMIDE\POTASSIUM CHLORIDE
     Indication: Hypertension
     Dosage: 40 MILLIGRAM
     Route: 048
  16. SPIRONOLACTONE [Concomitant]
     Active Substance: SPIRONOLACTONE
     Indication: Hypertension
     Dosage: 25 MILLIGRAM
     Route: 048
     Dates: start: 20170607
  17. FUROSEMIDE [Concomitant]
     Active Substance: FUROSEMIDE
     Indication: Hypertension
     Dosage: 40 MILLIGRAM
     Route: 048
     Dates: start: 20170519
  18. ALLOPURINOL [Concomitant]
     Active Substance: ALLOPURINOL
     Indication: Hyperuricaemia
     Dosage: 100 MILLIGRAM
     Route: 048

REACTIONS (5)
  - Haemoptysis [Recovered/Resolved]
  - Pulmonary haemorrhage [Recovered/Resolved]
  - Cytopenia [Recovered/Resolved]
  - Prothrombin time shortened [Unknown]
  - White blood cell count decreased [Unknown]

NARRATIVE: CASE EVENT DATE: 20190816
